FAERS Safety Report 22388693 (Version 1)
Quarter: 2023Q2

REPORT INFORMATION
  Report Type: Spontaneous
  Country: US (occurrence: None)
  Receive Date: 20230529
  Receipt Date: 20230529
  Transmission Date: 20230722
  Serious: Yes (Hospitalization, Disabling, Other)
  Sender: FDA-Public Use
  Company Number: None

PATIENT
  Age: 73 Year
  Sex: Male
  Weight: 70.65 kg

DRUGS (3)
  1. PRALUENT [Suspect]
     Active Substance: ALIROCUMAB
     Indication: Adverse reaction
     Dosage: OTHER FREQUENCY : EVERY TWO WEEKS;?
     Route: 058
  2. OMEPRAZOLE [Concomitant]
     Active Substance: OMEPRAZOLE
  3. advil PM (1 200 mg tablet) [Concomitant]

REACTIONS (13)
  - Hypersensitivity [None]
  - Contusion [None]
  - Haematoma [None]
  - Eye haemorrhage [None]
  - Headache [None]
  - Skin burning sensation [None]
  - Abdominal pain upper [None]
  - Flatulence [None]
  - Dizziness [None]
  - Loss of control of legs [None]
  - Arthralgia [None]
  - Rash macular [None]
  - Vasculitis [None]

NARRATIVE: CASE EVENT DATE: 20210221
